FAERS Safety Report 7057520-3 (Version None)
Quarter: 2010Q4

REPORT INFORMATION
  Report Type: 
  Country: None (occurrence: None)
  Receive Date: 20101022
  Receipt Date: 20101011
  Transmission Date: 20110411
  Serious: Yes (Hospitalization)
  Sender: FDA-Public Use
  Company Number: US-ROCHE-730682

PATIENT
  Sex: Female
  Weight: 81 kg

DRUGS (8)
  1. BEVACIZUMAB [Suspect]
     Dosage: FIRST DOSE
     Route: 042
     Dates: start: 20090902
  2. BEVACIZUMAB [Suspect]
     Dosage: CURRENT CYCLE 15, LAST DOSE PRIOR TO SAE: 21 SEP 2010, PERMANENTLY DISCONTINUED
     Route: 042
     Dates: start: 20100921, end: 20100921
  3. CAPECITABINE [Suspect]
     Dosage: 1500 MG EVERY AM AND 2000 MG EVERY PM
     Route: 048
     Dates: start: 20090902
  4. CAPECITABINE [Suspect]
     Dosage: CURRENT CYCLE 15, 1500 MG, EVER AM AND 2000 MG EVERY PM, INTERRUPTED
     Route: 048
     Dates: start: 20100921, end: 20100928
  5. RAD001 [Suspect]
     Dosage: CURRENT CYCLE 15
     Route: 048
     Dates: start: 20090902
  6. RAD001 [Suspect]
     Dosage: LAST DOSE: 28 SEP 2010, INTERRUPTED, CURRENT CYCLE:15, DOSE INTERRUPTION
     Route: 048
     Dates: start: 20100921
  7. OXALIPLATIN [Suspect]
     Route: 065
  8. DILAUDID [Concomitant]

REACTIONS (1)
  - AORTIC DISSECTION [None]
